FAERS Safety Report 21303139 (Version 5)
Quarter: 2023Q1

REPORT INFORMATION
  Report Type: Spontaneous
  Country: JP (occurrence: JP)
  Receive Date: 20220907
  Receipt Date: 20230225
  Transmission Date: 20230418
  Serious: Yes (Hospitalization, Other)
  Sender: FDA-Public Use
  Company Number: JP-NOVARTISPH-NVSC2022JP199590

PATIENT
  Age: 73 Year
  Sex: Female
  Weight: 56 kg

DRUGS (2)
  1. COSENTYX [Suspect]
     Active Substance: SECUKINUMAB
     Indication: Pustular psoriasis
     Dosage: 300 MG, QW
     Route: 058
     Dates: start: 20210605, end: 20210625
  2. COSENTYX [Suspect]
     Active Substance: SECUKINUMAB
     Indication: Pyoderma gangrenosum

REACTIONS (4)
  - Pemphigus [Recovered/Resolved]
  - Concomitant disease aggravated [Recovered/Resolved]
  - Eosinophil count increased [Recovered/Resolved]
  - Product use in unapproved indication [Unknown]

NARRATIVE: CASE EVENT DATE: 20210620
